FAERS Safety Report 20758029 (Version 1)
Quarter: 2022Q2

REPORT INFORMATION
  Report Type: Spontaneous
  Country: NO (occurrence: NO)
  Receive Date: 20220427
  Receipt Date: 20220427
  Transmission Date: 20220721
  Serious: Yes (Life-Threatening, Hospitalization)
  Sender: FDA-Public Use
  Company Number: None

PATIENT
  Age: 81 Year
  Sex: Male

DRUGS (2)
  1. KEPPRA [Suspect]
     Active Substance: LEVETIRACETAM
     Indication: Epilepsy
     Dosage: 500 MILLIGRAM, 2X/DAY (BID)
     Route: 048
     Dates: start: 20220306, end: 20220329
  2. KEPPRA [Suspect]
     Active Substance: LEVETIRACETAM
     Dosage: 250 MILLIGRAM, 2X/DAY (BID)
     Route: 048
     Dates: start: 20220331, end: 20220403

REACTIONS (6)
  - Dysphagia [Recovered/Resolved with Sequelae]
  - Muscle twitching [Recovered/Resolved]
  - Gait inability [Recovering/Resolving]
  - Somnolence [Recovered/Resolved with Sequelae]
  - Muscular weakness [Recovering/Resolving]
  - Product selection error [Unknown]

NARRATIVE: CASE EVENT DATE: 20220306
